FAERS Safety Report 5869034-4 (Version None)
Quarter: 2008Q3

REPORT INFORMATION
  Report Type: 
  Country: None (occurrence: None)
  Receive Date: 20080903
  Receipt Date: 20080829
  Transmission Date: 20090109
  Serious: Yes (Death)
  Sender: FDA-Public Use
  Company Number: A0745760A

PATIENT
  Age: 75 Year
  Sex: Female
  Weight: 67 kg

DRUGS (1)
  1. AVANDIA [Suspect]
     Dosage: 4MG TWICE PER DAY
     Route: 048
     Dates: start: 20060101, end: 20070901

REACTIONS (1)
  - RESPIRATORY FAILURE [None]
